FAERS Safety Report 13408420 (Version 1)
Quarter: 2017Q2

REPORT INFORMATION
  Report Type: Spontaneous
  Country: US (occurrence: US)
  Receive Date: 20170405
  Receipt Date: 20170405
  Transmission Date: 20170830
  Serious: Yes (Disabling, Other)
  Sender: FDA-Public Use
  Company Number: None

PATIENT
  Age: 65 Year
  Sex: Female
  Weight: 50.85 kg

DRUGS (6)
  1. LISINIPRIL [Concomitant]
  2. GABAPENTIN. [Concomitant]
     Active Substance: GABAPENTIN
  3. ESTRADIOL. [Concomitant]
     Active Substance: ESTRADIOL
  4. DULOXETINE. [Suspect]
     Active Substance: DULOXETINE
     Indication: DEPRESSION
     Dosage: ?          QUANTITY:3 CAPSULE(S);?
     Route: 048
     Dates: start: 20160102, end: 20170405
  5. DULOXETINE. [Suspect]
     Active Substance: DULOXETINE
     Indication: FIBROMYALGIA
     Dosage: ?          QUANTITY:3 CAPSULE(S);?
     Route: 048
     Dates: start: 20160102, end: 20170405
  6. MULTI VITAMINS [Concomitant]
     Active Substance: VITAMINS

REACTIONS (8)
  - Dry mouth [None]
  - Pain [None]
  - Impaired work ability [None]
  - Depression [None]
  - Dental caries [None]
  - Economic problem [None]
  - Tooth loss [None]
  - Emotional disorder [None]

NARRATIVE: CASE EVENT DATE: 20160415
